FAERS Safety Report 8029336-2 (Version None)
Quarter: 2012Q1

REPORT INFORMATION
  Report Type: 
  Country: None (occurrence: None)
  Receive Date: 20120106
  Receipt Date: 20111229
  Transmission Date: 20120608
  Serious: Yes (Other)
  Sender: FDA-Public Use
  Company Number: GB-ASTRAZENECA-2012SE00172

PATIENT
  Sex: Female

DRUGS (3)
  1. ZEBETA [Concomitant]
     Indication: HYPERCHOLESTEROLAEMIA
  2. SEROQUEL [Suspect]
     Route: 048
  3. CYMBALTA [Concomitant]

REACTIONS (15)
  - THERAPEUTIC RESPONSE UNEXPECTED [None]
  - VOMITING [None]
  - SUICIDAL IDEATION [None]
  - NAUSEA [None]
  - AFFECT LABILITY [None]
  - MOOD SWINGS [None]
  - PHOTOPHOBIA [None]
  - DISTURBANCE IN ATTENTION [None]
  - BLOOD CHOLESTEROL INCREASED [None]
  - TINNITUS [None]
  - DEPRESSION [None]
  - TEMPERATURE INTOLERANCE [None]
  - FATIGUE [None]
  - DRUG DOSE OMISSION [None]
  - DRUG INEFFECTIVE [None]
